FAERS Safety Report 10065179 (Version 3)
Quarter: 2016Q1

REPORT INFORMATION
  Report Type: Report from Study
  Country: JP (occurrence: JP)
  Receive Date: 20140408
  Receipt Date: 20160323
  Transmission Date: 20160525
  Serious: Yes (Death, Other)
  Sender: FDA-Public Use
  Company Number: JP-ALEXION PHARMACEUTICALS INC.-A201401153

PATIENT
  Age: 55 Year
  Sex: Male
  Weight: 59 kg

DRUGS (128)
  1. GRAN [Concomitant]
     Active Substance: FILGRASTIM
     Dosage: 75 ?G, QD
     Route: 041
     Dates: start: 20140605, end: 20140605
  2. DESFERAL [Concomitant]
     Active Substance: DEFEROXAMINE MESYLATE
     Indication: PROPHYLAXIS
     Dosage: 375 MG, BID
     Route: 041
     Dates: start: 20140903, end: 20140907
  3. MEROPENEM. [Concomitant]
     Active Substance: MEROPENEM
     Dosage: 1 G, BID
     Route: 041
     Dates: start: 20140906, end: 20140908
  4. SOSEGON                            /00052101/ [Concomitant]
     Active Substance: PENTAZOCINE
     Indication: PROPHYLAXIS
     Dosage: 15 MG, QD
     Route: 030
     Dates: start: 20140629, end: 20140629
  5. PRAVASTATIN [Concomitant]
     Active Substance: PRAVASTATIN\PRAVASTATIN SODIUM
     Indication: PROPHYLAXIS
     Dosage: 5 MG, QD
     Route: 048
     Dates: start: 20140319, end: 20140908
  6. NOVORAPID [Concomitant]
     Active Substance: INSULIN ASPART
     Indication: HYPERGLYCAEMIA
     Dosage: 10 ML, QD
     Route: 058
     Dates: start: 20140519, end: 20140525
  7. MAGTECT [Concomitant]
     Dosage: 10 ML, TID
     Route: 048
     Dates: start: 20140406, end: 20140526
  8. FILGRASTIM [Concomitant]
     Active Substance: FILGRASTIM
     Dosage: 75 ?G, QD
     Route: 058
     Dates: start: 20140820, end: 20140820
  9. FILGRASTIM [Concomitant]
     Active Substance: FILGRASTIM
     Dosage: 75 ?G, QD
     Route: 058
     Dates: start: 20140620, end: 20140705
  10. EXJADE [Concomitant]
     Active Substance: DEFERASIROX
     Dosage: 125 MG, BID
     Route: 048
     Dates: start: 20140425, end: 20140430
  11. PREDOPA                            /00360702/ [Concomitant]
     Dosage: 200 ML, QD
     Route: 041
     Dates: start: 20140908, end: 20140908
  12. MEYLON [Concomitant]
     Active Substance: SODIUM BICARBONATE
     Dosage: 250 ML, QD
     Route: 041
     Dates: start: 20140908, end: 20140908
  13. BENAMBAX [Concomitant]
     Active Substance: PENTAMIDINE
     Dosage: 5 ML, QD
     Dates: start: 20140407, end: 20140407
  14. VENETLIN [Concomitant]
     Active Substance: ALBUTEROL SULFATE
     Dosage: 0.3 ML, QD
     Dates: start: 20140703, end: 20140703
  15. K-SUPPLY [Concomitant]
     Active Substance: POTASSIUM CHLORIDE
     Dosage: 600 MG, BID
     Route: 048
     Dates: start: 20140715, end: 20140716
  16. SOLIRIS [Suspect]
     Active Substance: ECULIZUMAB
     Dosage: 1200 MG, Q2W
     Route: 042
     Dates: start: 20140403, end: 20140529
  17. DENOSINE /00090105/ [Suspect]
     Active Substance: ADENOSINE TRIPHOSPHATE
     Indication: INFECTION PROPHYLAXIS
     Dosage: 65 MG, QD
     Route: 041
     Dates: start: 20140319, end: 20140326
  18. NOVOLIN R [Concomitant]
     Active Substance: INSULIN HUMAN
     Dosage: UNK
  19. POLAPREZINC [Concomitant]
     Active Substance: POLAPREZINC
     Indication: PROPHYLAXIS
     Dosage: 75 MG, BID
     Route: 048
     Dates: start: 20140305, end: 20140908
  20. MAGNESIUM SALT [Concomitant]
     Dosage: 20 ML, QD
     Route: 041
     Dates: start: 20140311, end: 20140316
  21. ADALAT [Concomitant]
     Active Substance: NIFEDIPINE
     Indication: HYPERTENSION
     Dosage: 20 MG, BID
     Route: 048
     Dates: start: 20140731, end: 20140908
  22. DESFERAL [Concomitant]
     Active Substance: DEFEROXAMINE MESYLATE
     Dosage: 500 MG, BID
     Route: 041
     Dates: start: 20140811, end: 20140901
  23. CALONAL [Concomitant]
     Active Substance: ACETAMINOPHEN
     Indication: PROPHYLAXIS
     Dosage: 600 MG, PRN
     Route: 048
     Dates: start: 20140328, end: 20140514
  24. MIRCERA [Concomitant]
     Active Substance: METHOXY POLYETHYLENE GLYCOL-EPOETIN BETA
     Indication: PROPHYLAXIS
     Dosage: 50 ?G, QD
     Route: 041
     Dates: start: 20140318, end: 20140318
  25. NOVORAPID [Concomitant]
     Active Substance: INSULIN ASPART
     Dosage: 12 ML, QD
     Route: 058
     Dates: start: 20140526, end: 20140625
  26. FEBURIC [Concomitant]
     Active Substance: FEBUXOSTAT
     Indication: PROPHYLAXIS
     Dosage: 40 MG, QD
     Route: 048
     Dates: start: 20140305, end: 20140908
  27. SAXIZON [Concomitant]
     Active Substance: HYDROCORTISONE SODIUM SUCCINATE
     Dosage: 100 MG, QD
     Route: 041
     Dates: start: 20140818, end: 20140907
  28. PREDONINE [Concomitant]
     Active Substance: PREDNISOLONE\PREDNISOLONE ACETATE\PREDNISOLONE SODIUM SUCCINATE
     Dosage: 10 MG, QD
     Route: 048
     Dates: start: 20140326, end: 20140402
  29. PREDONINE [Concomitant]
     Active Substance: PREDNISOLONE\PREDNISOLONE ACETATE\PREDNISOLONE SODIUM SUCCINATE
     Dosage: 10 MG, BID
     Route: 048
     Dates: start: 20140403, end: 20140420
  30. PREDONINE [Concomitant]
     Active Substance: PREDNISOLONE\PREDNISOLONE ACETATE\PREDNISOLONE SODIUM SUCCINATE
     Dosage: 5 MG, BID
     Route: 048
     Dates: start: 20140607, end: 20140908
  31. AMLODIPINE                         /00972402/ [Concomitant]
     Active Substance: AMLODIPINE BESYLATE
     Indication: HYPERTENSION
     Dosage: 25 MG, QD
     Route: 048
     Dates: start: 20140831, end: 20140901
  32. PREDNISOLONE. [Concomitant]
     Active Substance: PREDNISOLONE
     Indication: PROPHYLAXIS
     Dosage: 3 MG, BID
     Route: 048
     Dates: start: 20140619, end: 20140625
  33. PREDNISOLONE. [Concomitant]
     Active Substance: PREDNISOLONE
     Dosage: 4, BID
     Route: 048
     Dates: start: 20140626, end: 20140908
  34. PREDOPA                            /00360702/ [Concomitant]
     Indication: CIRCULATORY COLLAPSE
     Dosage: 200 ML, QD
     Route: 041
     Dates: start: 20140703, end: 20140705
  35. ROPION [Concomitant]
     Active Substance: FLURBIPROFEN AXETIL
     Indication: PROPHYLAXIS
     Dosage: 25 MG, BID
     Route: 041
     Dates: start: 20140906, end: 20140907
  36. CEFTRIAXONE NA [Concomitant]
     Active Substance: CEFTRIAXONE
     Dosage: 1 G, QD
     Route: 041
     Dates: start: 20140514, end: 20140514
  37. BENAMBAX [Concomitant]
     Active Substance: PENTAMIDINE
     Dosage: 5 ML, QD
     Dates: start: 20140605, end: 20140605
  38. BENAMBAX [Concomitant]
     Active Substance: PENTAMIDINE
     Dosage: 5 ML, QD
     Dates: start: 20140703, end: 20140703
  39. BENAMBAX [Concomitant]
     Active Substance: PENTAMIDINE
     Dosage: 5 ML, QD
     Dates: start: 20140731, end: 20140731
  40. PARIET [Concomitant]
     Active Substance: RABEPRAZOLE SODIUM
     Indication: PROPHYLAXIS
     Dosage: 10 MG, QD
     Route: 048
     Dates: start: 20140305, end: 20140402
  41. NOVOLIN R [Concomitant]
     Active Substance: INSULIN HUMAN
     Dosage: 35 ML, QD
     Route: 041
     Dates: start: 20140629, end: 20140629
  42. MAGNESIUM SALT [Concomitant]
     Indication: PROPHYLAXIS
     Dosage: 20 ML, QD
     Route: 041
     Dates: start: 20140305, end: 20140305
  43. PRIMPERAN [Concomitant]
     Active Substance: METOCLOPRAMIDE HYDROCHLORIDE
     Indication: PROPHYLAXIS
     Dosage: 10 MG, QD
     Route: 041
     Dates: start: 20140331, end: 20140331
  44. SHAKUYAKUKANZOTO [Concomitant]
     Active Substance: HERBALS
     Indication: PROPHYLAXIS
     Dosage: 2 G, QD
     Route: 048
     Dates: start: 20140821, end: 20140821
  45. URSO [Concomitant]
     Active Substance: URSODIOL
     Dosage: 200 MG, TID
     Route: 048
     Dates: start: 20140605, end: 20140908
  46. NOVORAPID [Concomitant]
     Active Substance: INSULIN ASPART
     Dosage: IU, BID
     Route: 065
     Dates: start: 20140512, end: 20140626
  47. PREDONINE [Concomitant]
     Active Substance: PREDNISOLONE\PREDNISOLONE ACETATE\PREDNISOLONE SODIUM SUCCINATE
     Indication: PROPHYLAXIS
     Dosage: 20 MG, TID
     Route: 048
     Dates: start: 20140305, end: 20140307
  48. PREDONINE [Concomitant]
     Active Substance: PREDNISOLONE\PREDNISOLONE ACETATE\PREDNISOLONE SODIUM SUCCINATE
     Dosage: 15 MG, QD
     Route: 048
     Dates: start: 20140326, end: 20140402
  49. PREDONINE [Concomitant]
     Active Substance: PREDNISOLONE\PREDNISOLONE ACETATE\PREDNISOLONE SODIUM SUCCINATE
     Dosage: 10 MG, QD
     Route: 048
     Dates: start: 20140601, end: 20140606
  50. ADRENALINE                         /00003901/ [Concomitant]
     Active Substance: EPINEPHRINE
     Indication: PRODUCT USED FOR UNKNOWN INDICATION
     Dosage: 1 ML, QID
     Route: 041
     Dates: start: 20140908, end: 20140908
  51. ZANTAC [Concomitant]
     Active Substance: RANITIDINE HYDROCHLORIDE
     Indication: PROPHYLAXIS
     Dosage: 150 MG, BID
     Route: 048
     Dates: start: 20140327, end: 20140402
  52. ARGAMATE [Concomitant]
     Active Substance: CALCIUM POLYSTYRENE SULFONATE
     Indication: PROPHYLAXIS
     Dosage: 25 G, TID
     Route: 048
     Dates: start: 20140609, end: 20140825
  53. CEFTRIAXONE NA [Concomitant]
     Active Substance: CEFTRIAXONE
     Dosage: 2 G, QD
     Route: 041
     Dates: start: 20140521, end: 20140521
  54. VENETLIN [Concomitant]
     Active Substance: ALBUTEROL SULFATE
     Indication: INFECTION PROPHYLAXIS
     Dosage: 0.3 ML, QD
     Dates: start: 20140305, end: 20140305
  55. VENETLIN [Concomitant]
     Active Substance: ALBUTEROL SULFATE
     Dosage: 0.3 ML, QD
     Dates: start: 20140605, end: 20140605
  56. K-SUPPLY [Concomitant]
     Active Substance: POTASSIUM CHLORIDE
     Indication: PROPHYLAXIS
     Dosage: 1200 MG, BID
     Route: 048
     Dates: start: 20140705, end: 20140714
  57. TRAMCET [Concomitant]
     Active Substance: ACETAMINOPHEN\TRAMADOL
     Indication: PROPHYLAXIS
     Dosage: 1, QID
     Route: 048
     Dates: start: 20140628, end: 20140709
  58. AVELOX [Concomitant]
     Active Substance: MOXIFLOXACIN HYDROCHLORIDE
     Indication: INFECTION PROPHYLAXIS
     Dosage: 400 MG, QD
     Route: 048
     Dates: start: 20140305, end: 20140312
  59. GRAN [Concomitant]
     Active Substance: FILGRASTIM
     Indication: PROPHYLAXIS
     Dosage: 300 ?G, QD
     Route: 041
     Dates: start: 20140327, end: 20140404
  60. ACELIO [Concomitant]
     Active Substance: ACETAMINOPHEN
     Dosage: 500 MG, QD
     Route: 041
     Dates: start: 20140908, end: 20140908
  61. NOREPINEPHRINE [Concomitant]
     Active Substance: NOREPINEPHRINE\NOREPINEPHRINE BITARTRATE
     Indication: PROPHYLAXIS
     Dosage: 2 MG, QD
     Route: 041
     Dates: start: 20140702, end: 20140702
  62. TARGOCID [Concomitant]
     Active Substance: TEICOPLANIN
     Indication: PRODUCT USED FOR UNKNOWN INDICATION
     Dosage: 400 MG, QD
     Route: 041
     Dates: start: 20140703, end: 20140716
  63. FILGRASTIM [Concomitant]
     Active Substance: FILGRASTIM
     Dosage: 75 ?G, QD
     Route: 058
     Dates: start: 20140519, end: 20140523
  64. PREDONINE [Concomitant]
     Active Substance: PREDNISOLONE\PREDNISOLONE ACETATE\PREDNISOLONE SODIUM SUCCINATE
     Dosage: 7.5 MG, BID
     Route: 048
     Dates: start: 20140421, end: 20140427
  65. REBAMIPIDE [Concomitant]
     Active Substance: REBAMIPIDE
     Indication: PROPHYLAXIS
     Dosage: 100 MG, TID
     Route: 048
     Dates: start: 20140627, end: 20140908
  66. BROTIZOLAM [Concomitant]
     Active Substance: BROTIZOLAM
     Indication: PROPHYLAXIS
     Dosage: 0.25 MG, PRN
     Route: 048
     Dates: start: 20140316, end: 20140829
  67. BONOTEO [Concomitant]
     Active Substance: MINODRONIC ACID
     Indication: PROPHYLAXIS
     Dosage: 50 MG, UNK
     Route: 048
     Dates: start: 20140508, end: 20140828
  68. POLARAMINE [Concomitant]
     Active Substance: DEXCHLORPHENIRAMINE MALEATE
     Indication: INFECTION PROPHYLAXIS
     Dosage: 5 MG, QD
     Route: 041
     Dates: start: 20140305, end: 20140813
  69. VALTREX [Concomitant]
     Active Substance: VALACYCLOVIR HYDROCHLORIDE
     Indication: INFECTION PROPHYLAXIS
     Dosage: 500 MG, QD
     Route: 048
     Dates: start: 20140305, end: 20140320
  70. NOVOLIN R [Concomitant]
     Active Substance: INSULIN HUMAN
     Dosage: 50 ML, QD
     Route: 041
     Dates: start: 20140630, end: 20140718
  71. RECOMODULIN [Concomitant]
     Active Substance: THROMBOMODULIN ALFA
     Indication: THROMBOTIC MICROANGIOPATHY
     Dosage: UNK, QD
     Route: 042
     Dates: start: 20140305, end: 20140315
  72. LASIX [Concomitant]
     Active Substance: FUROSEMIDE
     Indication: PROPHYLAXIS
     Dosage: 20 MG, QD
     Route: 041
     Dates: start: 20140526, end: 20140530
  73. LASIX [Concomitant]
     Active Substance: FUROSEMIDE
     Dosage: 10 MG, QD
     Route: 058
     Dates: start: 20140908, end: 20140908
  74. URSO [Concomitant]
     Active Substance: URSODIOL
     Indication: PROPHYLAXIS
     Dosage: 200 MG, TID
     Route: 048
     Dates: start: 20140305, end: 20140604
  75. SANMEL [Concomitant]
     Indication: PROPHYLAXIS
     Dosage: 20 ML, QID
     Route: 048
     Dates: start: 20140406, end: 20140604
  76. TARGOCID [Concomitant]
     Active Substance: TEICOPLANIN
     Dosage: 400 MG, BID
     Route: 041
     Dates: start: 20140820, end: 20140820
  77. OMEPRAL                            /00661201/ [Concomitant]
     Active Substance: OMEPRAZOLE
     Indication: PROPHYLAXIS
     Dosage: 20 MG, BID
     Route: 041
     Dates: start: 20140401, end: 20140421
  78. NEUTROGIN [Concomitant]
     Active Substance: LENOGRASTIM
     Indication: PROPHYLAXIS
     Dosage: 100 ?G, QD
     Route: 058
     Dates: start: 20140528, end: 20140528
  79. PANTOL                             /00178901/ [Concomitant]
     Dosage: 500 MG, QD
     Route: 041
     Dates: start: 20140703, end: 20140708
  80. MAGTECT [Concomitant]
     Indication: PROPHYLAXIS
     Dosage: 10 ML, TID
     Route: 048
     Dates: start: 20140628, end: 20140908
  81. PREDONINE [Concomitant]
     Active Substance: PREDNISOLONE\PREDNISOLONE ACETATE\PREDNISOLONE SODIUM SUCCINATE
     Dosage: 15 MG, BID
     Route: 048
     Dates: start: 20140308, end: 20140325
  82. PREDONINE [Concomitant]
     Active Substance: PREDNISOLONE\PREDNISOLONE ACETATE\PREDNISOLONE SODIUM SUCCINATE
     Dosage: 10 MG, BID
     Route: 048
     Dates: start: 20140505, end: 20140531
  83. REMINARON [Concomitant]
     Active Substance: GABEXATE MESYLATE
     Indication: PROPHYLAXIS
     Dosage: 100 MG, TID
     Route: 041
     Dates: start: 20140721, end: 20140726
  84. FOIPAN [Concomitant]
     Active Substance: CAMOSTAT MESYLATE
     Indication: PROPHYLAXIS
     Dosage: 200 MG, TID
     Route: 048
     Dates: start: 20140727, end: 20140828
  85. PROTECADIN [Concomitant]
     Active Substance: LAFUTIDINE
     Indication: PROPHYLAXIS
     Dosage: 10 MG, TID
     Route: 048
     Dates: start: 20140518, end: 20140908
  86. BENAMBAX [Concomitant]
     Active Substance: PENTAMIDINE
     Dosage: 5 ML, QD
     Dates: start: 20140508, end: 20140508
  87. SOLIRIS [Suspect]
     Active Substance: ECULIZUMAB
     Indication: HAEMOLYTIC URAEMIC SYNDROME
     Dosage: 900 MG, QW
     Route: 042
     Dates: start: 20140306, end: 20140327
  88. ADALAT [Concomitant]
     Active Substance: NIFEDIPINE
     Dosage: 10 MG, BID
     Route: 048
     Dates: start: 20140726, end: 20140730
  89. LASIX [Concomitant]
     Active Substance: FUROSEMIDE
     Dosage: 20 MG, QD TO BID
     Route: 041
     Dates: start: 20140705, end: 20140722
  90. POTASSIUM CHLORIDE. [Concomitant]
     Active Substance: POTASSIUM CHLORIDE
     Indication: PROPHYLAXIS
     Dosage: 60 ML, QD
     Route: 041
     Dates: start: 20140706, end: 20140709
  91. BUSCOPAN [Concomitant]
     Active Substance: BUTYLSCOPOLAMINE BROMIDE
     Dosage: 20 MG, BID
     Route: 041
     Dates: start: 20140629, end: 20140629
  92. NEXIUM [Concomitant]
     Active Substance: ESOMEPRAZOLE MAGNESIUM
     Indication: PROPHYLAXIS
     Dosage: 20 MG, QD
     Route: 048
     Dates: start: 20140422, end: 20140518
  93. TARGOCID [Concomitant]
     Active Substance: TEICOPLANIN
     Dosage: 400 MG, QD
     Route: 041
     Dates: start: 20140710, end: 20140716
  94. NOVORAPID [Concomitant]
     Active Substance: INSULIN ASPART
     Dosage: 3 ML, QD
     Route: 058
     Dates: start: 20140626, end: 20140626
  95. PANTOL                             /00178901/ [Concomitant]
     Indication: PROPHYLAXIS
     Dosage: 1000 MG, QD
     Route: 041
     Dates: start: 20140701, end: 20140702
  96. SAXIZON [Concomitant]
     Active Substance: HYDROCORTISONE SODIUM SUCCINATE
     Indication: PROPHYLAXIS
     Dosage: 100 MG, QD
     Route: 041
     Dates: start: 20140627, end: 20140702
  97. PREDONINE [Concomitant]
     Active Substance: PREDNISOLONE\PREDNISOLONE ACETATE\PREDNISOLONE SODIUM SUCCINATE
     Dosage: 5 MG, BID
     Route: 048
     Dates: start: 20140428, end: 20140504
  98. CRAVIT [Concomitant]
     Active Substance: LEVOFLOXACIN
     Indication: INFECTION PROPHYLAXIS
     Dosage: UNK, A PROPER DOSE
     Route: 047
     Dates: start: 20140513, end: 20140702
  99. EXJADE [Concomitant]
     Active Substance: DEFERASIROX
     Indication: PROPHYLAXIS
     Dosage: 500 MG, QD
     Route: 048
     Dates: start: 20140418, end: 20140424
  100. VFEND [Concomitant]
     Active Substance: VORICONAZOLE
     Indication: INFECTION PROPHYLAXIS
     Dosage: 150 MG, BID
     Route: 048
     Dates: start: 20140217, end: 20140304
  101. VFEND [Concomitant]
     Active Substance: VORICONAZOLE
     Dosage: 100 MG, BID
     Route: 048
     Dates: start: 20140305, end: 20140905
  102. CEFTRIAXONE NA [Concomitant]
     Active Substance: CEFTRIAXONE
     Dosage: 1 G, BID
     Route: 041
     Dates: start: 20140515, end: 20140520
  103. CEFTRIAXONE NA [Concomitant]
     Active Substance: CEFTRIAXONE
     Dosage: 1 G, BID
     Route: 041
     Dates: start: 20140702, end: 20140714
  104. BENAMBAX [Concomitant]
     Active Substance: PENTAMIDINE
     Dosage: 5 ML, QD
     Dates: start: 20140828, end: 20140828
  105. DENOSINE                           /00090105/ [Suspect]
     Active Substance: ADENOSINE TRIPHOSPHATE
     Dosage: 65 MG, QD
     Route: 042
     Dates: start: 20140630, end: 20140702
  106. PARIET [Concomitant]
     Active Substance: RABEPRAZOLE SODIUM
     Dosage: 20 MG, QD
     Route: 048
     Dates: start: 20140627, end: 20140908
  107. NOVOLIN R [Concomitant]
     Active Substance: INSULIN HUMAN
     Indication: HYPERGLYCAEMIA
     Dosage: 6-30 ONE TIME, 2-3 TIMES A DAY
     Route: 065
     Dates: start: 20140305, end: 20140908
  108. NOVOLIN R [Concomitant]
     Active Substance: INSULIN HUMAN
     Dosage: 30 ML, QD
     Route: 030
     Dates: start: 20140628, end: 20140628
  109. MYSLEE [Concomitant]
     Active Substance: ZOLPIDEM TARTRATE
     Indication: PROPHYLAXIS
     Dosage: 5 MG, PRN
     Route: 048
     Dates: start: 20140309, end: 20140310
  110. MEROPENEM. [Concomitant]
     Active Substance: MEROPENEM
     Indication: PROPHYLAXIS
     Dosage: 1 G, QD
     Route: 041
     Dates: start: 20140905, end: 20140908
  111. BUSCOPAN [Concomitant]
     Active Substance: BUTYLSCOPOLAMINE BROMIDE
     Dosage: 10 MG, PRN
     Route: 048
     Dates: start: 20140626, end: 20140808
  112. TARGOCID [Concomitant]
     Active Substance: TEICOPLANIN
     Dosage: 400 MG, QD
     Route: 042
     Dates: start: 20140821, end: 20140826
  113. SANGLOPOR [Concomitant]
     Active Substance: HUMAN IMMUNOGLOBULIN G
     Indication: INFECTION PROPHYLAXIS
     Dosage: 5 G, UNK
     Route: 041
     Dates: start: 20140331, end: 20140331
  114. VENETLIN [Concomitant]
     Active Substance: ALBUTEROL SULFATE
     Dosage: 0.3 ML, QD
     Dates: start: 20140407, end: 20140407
  115. VENETLIN [Concomitant]
     Active Substance: ALBUTEROL SULFATE
     Dosage: 0.3 ML, QD
     Dates: start: 20140731, end: 20140731
  116. BIO-THREE [Concomitant]
     Active Substance: HERBALS
     Indication: PROPHYLAXIS
     Dosage: 2 MG, TID
     Route: 048
     Dates: start: 20140305, end: 20140908
  117. HEPARIN [Concomitant]
     Active Substance: HEPARIN SODIUM
     Indication: PRODUCT USED FOR UNKNOWN INDICATION
     Dosage: 10 ML, QD
     Route: 041
     Dates: start: 20140320, end: 20140410
  118. ANTEBATE [Concomitant]
     Active Substance: BETAMETHASONE DIPROPIONATE
     Indication: PROPHYLAXIS
     Dosage: 10 G, A PROPER DOSE
     Dates: start: 20140623, end: 20140623
  119. ACELIO [Concomitant]
     Active Substance: ACETAMINOPHEN
     Indication: PROPHYLAXIS
     Dosage: 500 MG, QD
     Route: 041
     Dates: start: 20140902, end: 20140908
  120. BUSCOPAN [Concomitant]
     Active Substance: BUTYLSCOPOLAMINE BROMIDE
     Indication: PROPHYLAXIS
     Dosage: 20 MG, QD
     Route: 041
     Dates: start: 20140628, end: 20140628
  121. CALONAL [Concomitant]
     Active Substance: ACETAMINOPHEN
     Dosage: 600 MG, PRN
     Route: 048
     Dates: start: 20140818, end: 20140908
  122. SAXIZON [Concomitant]
     Active Substance: HYDROCORTISONE SODIUM SUCCINATE
     Dosage: 100 MG, SINGLE
     Route: 041
     Dates: start: 20140331, end: 20140331
  123. FILGRASTIM [Concomitant]
     Active Substance: FILGRASTIM
     Indication: PROPHYLAXIS
     Dosage: 75 ?G, QD
     Route: 058
     Dates: start: 20140325, end: 20140327
  124. MEYLON [Concomitant]
     Active Substance: SODIUM BICARBONATE
     Indication: PROPHYLAXIS
     Dosage: 250 ML, QD
     Route: 041
     Dates: start: 20140113, end: 20140118
  125. CEFTRIAXONE NA [Concomitant]
     Active Substance: CEFTRIAXONE
     Indication: INFECTION PROPHYLAXIS
     Dosage: 2 G, QD
     Route: 041
     Dates: start: 20140328, end: 20140404
  126. BENAMBAX [Concomitant]
     Active Substance: PENTAMIDINE
     Indication: INFECTION PROPHYLAXIS
     Dosage: 5 ML, QD
     Dates: start: 20140305, end: 20140305
  127. VENETLIN [Concomitant]
     Active Substance: ALBUTEROL SULFATE
     Dosage: 0.3 ML, QD
     Dates: start: 20140508, end: 20140508
  128. VENETLIN [Concomitant]
     Active Substance: ALBUTEROL SULFATE
     Dosage: 0.3 ML, QD
     Dates: start: 20140828, end: 20140828

REACTIONS (6)
  - Agranulocytosis [Recovered/Resolved]
  - Respiratory failure [Fatal]
  - Bacterial infection [Not Recovered/Not Resolved]
  - Secondary hypertension [Not Recovered/Not Resolved]
  - Gastric ulcer haemorrhage [Recovered/Resolved]
  - Pulmonary embolism [Fatal]

NARRATIVE: CASE EVENT DATE: 20140311
